FAERS Safety Report 5967653-8 (Version None)
Quarter: 2008Q4

REPORT INFORMATION
  Report Type: 
  Country: None (occurrence: None)
  Receive Date: 20081126
  Receipt Date: 20081119
  Transmission Date: 20090506
  Serious: Yes (Other)
  Sender: FDA-Public Use
  Company Number: PHNU2008DE02042

PATIENT
  Sex: Female

DRUGS (4)
  1. RASILEZ [Suspect]
     Dosage: 1 DF, QD
     Dates: start: 20080321
  2. FUROSEMIDE [Concomitant]
     Dosage: 1 DF, QD
  3. METOHEXAL [Concomitant]
     Dosage: 1 DF, QD
  4. BLOPRESS [Concomitant]
     Dosage: 1 DF, QD

REACTIONS (2)
  - ANGINA PECTORIS [None]
  - OEDEMA PERIPHERAL [None]
